FAERS Safety Report 10652006 (Version 3)
Quarter: 2016Q4

REPORT INFORMATION
  Report Type: Spontaneous
  Country: US (occurrence: US)
  Receive Date: 20141215
  Receipt Date: 20161227
  Transmission Date: 20170206
  Serious: No
  Sender: FDA-Public Use
  Company Number: US-PFIZER INC-2014341198

PATIENT
  Age: 60 Year
  Sex: Male

DRUGS (5)
  1. ACETAMINOPHEN-CODEINE [Suspect]
     Active Substance: ACETAMINOPHEN\CODEINE PHOSPHATE
     Dosage: UNK
  2. LISINOPRIL. [Suspect]
     Active Substance: LISINOPRIL
     Dosage: UNK
  3. CODEINE [Suspect]
     Active Substance: CODEINE
     Dosage: UNK
  4. IBUPROFEN SODIUM. [Suspect]
     Active Substance: IBUPROFEN SODIUM
     Dosage: UNK
  5. SODIUM CHLORIDE. [Suspect]
     Active Substance: SODIUM CHLORIDE

REACTIONS (1)
  - Drug hypersensitivity [Unknown]
